FAERS Safety Report 14666218 (Version 1)
Quarter: 2018Q1

REPORT INFORMATION
  Report Type: Spontaneous
  Country: GB (occurrence: GB)
  Receive Date: 20180321
  Receipt Date: 20180321
  Transmission Date: 20180509
  Serious: Yes (Life-Threatening)
  Sender: FDA-Public Use
  Company Number: GB-TEVA-2018-GB-870140

PATIENT
  Age: 65 Year
  Sex: Male
  Weight: 92 kg

DRUGS (15)
  1. CLARITHROMYCIN. [Concomitant]
     Active Substance: CLARITHROMYCIN
  2. INDAPAMIDE. [Concomitant]
     Active Substance: INDAPAMIDE
     Dosage: 1 DOSAGE FORMS DAILY;
  3. SALBUTAMOL [Concomitant]
     Active Substance: ALBUTEROL
     Dosage: INHALE 2 DOSES QDS AS NEEDED
     Route: 055
  4. AMOXICILLIN. [Concomitant]
     Active Substance: AMOXICILLIN
     Dosage: 3 DOSAGE FORMS DAILY;
  5. ATORVASTATIN [Concomitant]
     Active Substance: ATORVASTATIN
     Dosage: 1 DOSAGE FORMS DAILY;
  6. FELODIPINE. [Concomitant]
     Active Substance: FELODIPINE
     Dosage: 2 DOSAGE FORMS DAILY;
  7. COAPROVEL [Concomitant]
     Active Substance: HYDROCHLOROTHIAZIDE\IRBESARTAN
     Dosage: 1 DOSAGE FORMS DAILY;
  8. DOXAZOSIN [Suspect]
     Active Substance: DOXAZOSIN\DOXAZOSIN MESYLATE
     Route: 065
  9. FUROSEMIDE. [Concomitant]
     Active Substance: FUROSEMIDE
  10. METFORMIN [Concomitant]
     Active Substance: METFORMIN HYDROCHLORIDE
     Dosage: 2 DOSAGE FORMS DAILY;
  11. SPIRONOLACTONE. [Concomitant]
     Active Substance: SPIRONOLACTONE
     Dosage: 1 DOSAGE FORMS DAILY;
  12. CANAGLIFLOZIN [Concomitant]
     Active Substance: CANAGLIFLOZIN
     Dosage: 1 DOSAGE FORMS DAILY;
  13. AMLODIPINE [Concomitant]
     Active Substance: AMLODIPINE BESYLATE
     Dosage: 1 DOSAGE FORMS DAILY;
  14. PRO D3 [Concomitant]
     Dosage: 1 DOSAGE FORMS DAILY;
  15. ACETYLSALICYLIC ACID [Concomitant]
     Active Substance: ASPIRIN
     Dosage: 1 DOSAGE FORMS DAILY;

REACTIONS (1)
  - Lip swelling [Recovered/Resolved]
